FAERS Safety Report 4292706-2 (Version None)
Quarter: 2004Q1

REPORT INFORMATION
  Report Type: 
  Country: None (occurrence: None)
  Receive Date: 20040126
  Receipt Date: 20031013
  Transmission Date: 20041129
  Serious: No
  Sender: FDA-Public Use
  Company Number: USA031049750

PATIENT
  Age: 56 Year
  Sex: Female

DRUGS (7)
  1. FORTEO [Suspect]
     Dates: start: 20030901
  2. PREDNISONE [Concomitant]
  3. ANAPROX(NAPROXENE SODIUM) [Concomitant]
  4. PLAQUENIL [Concomitant]
  5. VICODIN [Concomitant]
  6. PREVACID [Concomitant]
  7. MULTI-VITAMIN [Concomitant]

REACTIONS (1)
  - MUSCLE SPASMS [None]
